FAERS Safety Report 10949097 (Version 1)
Quarter: 2015Q1

REPORT INFORMATION
  Report Type: Spontaneous
  Country: JP (occurrence: JP)
  Receive Date: 20150324
  Receipt Date: 20150324
  Transmission Date: 20150721
  Serious: Yes (Death, Other)
  Sender: FDA-Public Use
  Company Number: JP-ASTELLAS-2008JP003329

PATIENT
  Age: 53 Year
  Sex: Female

DRUGS (2)
  1. PROGRAF [Suspect]
     Active Substance: TACROLIMUS\TACROLIMUS ANHYDROUS
     Indication: LIVER TRANSPLANT
     Route: 065
  2. METHYLPREDNISOLONE. [Concomitant]
     Active Substance: METHYLPREDNISOLONE
     Indication: LIVER TRANSPLANT
     Route: 065

REACTIONS (5)
  - Langerhans^ cell histiocytosis [Fatal]
  - Pulmonary mycosis [Recovering/Resolving]
  - Neutrophil count decreased [Unknown]
  - Acute kidney injury [Recovering/Resolving]
  - Septic shock [Recovering/Resolving]
